FAERS Safety Report 17459507 (Version 1)
Quarter: 2020Q1

REPORT INFORMATION
  Report Type: Spontaneous
  Country: US (occurrence: US)
  Receive Date: 20200225
  Receipt Date: 20200225
  Transmission Date: 20200409
  Serious: No
  Sender: FDA-Public Use
  Company Number: US-ROCHE-2301460

PATIENT
  Sex: Male
  Weight: 40.41 kg

DRUGS (5)
  1. FERRIC SULFATE [Concomitant]
     Active Substance: FERRIC SULFATE
     Route: 065
     Dates: start: 20170316
  2. NUTROPIN AQ [Suspect]
     Active Substance: SOMATROPIN
     Dosage: ONGOING: UNK
     Route: 058
     Dates: start: 20181004
  3. FLUZONE [INFLUENZA VACCINE] [Concomitant]
     Dosage: PEDIATRIC
     Route: 030
     Dates: start: 20171102
  4. PHOSLO [Concomitant]
     Active Substance: CALCIUM ACETATE
     Route: 048
     Dates: start: 20170316
  5. NUTROPIN AQ [Suspect]
     Active Substance: SOMATROPIN
     Indication: CHRONIC KIDNEY DISEASE-MINERAL AND BONE DISORDER
     Route: 058
     Dates: start: 20170322

REACTIONS (3)
  - Influenza like illness [Unknown]
  - Off label use [Unknown]
  - Intentional product use issue [Unknown]
